FAERS Safety Report 8059627-0 (Version None)
Quarter: 2012Q1

REPORT INFORMATION
  Report Type: 
  Country: None (occurrence: None)
  Receive Date: 20120120
  Receipt Date: 20120109
  Transmission Date: 20120608
  Serious: Yes (Other)
  Sender: FDA-Public Use
  Company Number: PHHY2011BR109504

PATIENT
  Age: 65 Year
  Sex: Male

DRUGS (3)
  1. DIOVAN HCT [Suspect]
     Dosage: 160/12.5MG
  2. DIOVAN HCT [Suspect]
     Indication: HYPERTENSION
     Dosage: 0.5 DF (160/12.5), EACH OTHER DAY
  3. DIOVAN HCT [Suspect]
     Dosage: 160/25MG

REACTIONS (7)
  - OESOPHAGEAL ACHALASIA [None]
  - NECK PAIN [None]
  - WRONG DRUG ADMINISTERED [None]
  - DYSPNOEA [None]
  - CHEST PAIN [None]
  - WRONG TECHNIQUE IN DRUG USAGE PROCESS [None]
  - BLOOD PRESSURE SYSTOLIC INCREASED [None]
